FAERS Safety Report 18639956 (Version 1)
Quarter: 2020Q4

REPORT INFORMATION
  Report Type: Spontaneous
  Country: US (occurrence: US)
  Receive Date: 20201220
  Receipt Date: 20201220
  Transmission Date: 20210114
  Serious: No
  Sender: FDA-Public Use
  Company Number: US-PACIRA-202000047

PATIENT
  Age: 43 Year
  Sex: Female
  Weight: 77 kg

DRUGS (1)
  1. EXPAREL [Suspect]
     Active Substance: BUPIVACAINE
     Indication: HYSTERECTOMY
     Dosage: 40 ML DILUTED IN 20 ML OF SALINE. TOTAL DOSE OF 532 MG (2- 20 ML VIALS, 40 ML)
     Dates: start: 20200224, end: 20200224

REACTIONS (2)
  - Off label use [Unknown]
  - Extra dose administered [Recovered/Resolved]
